FAERS Safety Report 5330782-6 (Version None)
Quarter: 2007Q2

REPORT INFORMATION
  Report Type: 
  Country: None (occurrence: None)
  Receive Date: 20070516
  Receipt Date: 20070509
  Transmission Date: 20071010
  Serious: Yes (Hospitalization)
  Sender: FDA-Public Use
  Company Number: 2007BI009242

PATIENT
  Age: 51 Year
  Sex: Female
  Weight: 49.8957 kg

DRUGS (17)
  1. NATALIZUMAB [Suspect]
     Indication: MULTIPLE SCLEROSIS
     Dosage: 300 MG; QM; IV
     Route: 042
     Dates: start: 20060902
  2. ASTELIN NOSE SPRAY [Concomitant]
  3. FLONASE [Concomitant]
  4. ESTRATEST [Concomitant]
  5. NEXIUM [Concomitant]
  6. REGLAN [Concomitant]
  7. SYNTHROID [Concomitant]
  8. LISINOPRIL [Concomitant]
  9. FOLTX [Concomitant]
  10. LYRICA [Concomitant]
  11. FISH OIL [Concomitant]
  12. VITAMIN E [Concomitant]
  13. MTV [Concomitant]
  14. ASCORBIC ACID [Concomitant]
  15. GARLIC [Concomitant]
  16. VITAMIN B SUPER B [Concomitant]
  17. BACLOFEN [Concomitant]

REACTIONS (4)
  - ARTHRITIS [None]
  - INTERVERTEBRAL DISC PROTRUSION [None]
  - MUSCLE SPASMS [None]
  - PAIN [None]
